FAERS Safety Report 8126107-3 (Version None)
Quarter: 2012Q1

REPORT INFORMATION
  Report Type: 
  Country: None (occurrence: None)
  Receive Date: 20120209
  Receipt Date: 20120202
  Transmission Date: 20120608
  Serious: Yes (Other)
  Sender: FDA-Public Use
  Company Number: PHHY2012BR009820

PATIENT
  Sex: Male

DRUGS (2)
  1. CLONAZEPAM [Concomitant]
     Indication: INSOMNIA
     Dosage: 15 DROPS IN THE MORNING AND 20 DROPS AT NIGHT, FOR 10 YEARS
     Route: 048
  2. TRILEPTAL [Suspect]
     Indication: CONVULSION
     Dosage: 8 ML IN THE MORNING AND 8 ML AT NIGHT

REACTIONS (3)
  - SOMNOLENCE [None]
  - ACCIDENTAL OVERDOSE [None]
  - FEELING ABNORMAL [None]
